FAERS Safety Report 7319360-7 (Version None)
Quarter: 2011Q1

REPORT INFORMATION
  Report Type: 
  Country: None (occurrence: None)
  Receive Date: 20110228
  Receipt Date: 20100216
  Transmission Date: 20110831
  Serious: No
  Sender: FDA-Public Use
  Company Number: A0844731A

PATIENT
  Age: 57 Year
  Sex: Female

DRUGS (6)
  1. DILANTIN [Concomitant]
  2. LAMICTAL XR [Suspect]
     Dosage: 200MG TWICE PER DAY
     Route: 048
     Dates: start: 20091001
  3. IBUPROFEN [Concomitant]
  4. GLUCOSAMINE/CHONDROITIN [Concomitant]
  5. LAMOTRIGINE [Suspect]
     Dosage: 200MG TWICE PER DAY
     Route: 048
     Dates: start: 20090301, end: 20090101
  6. FEXOFENADINE [Concomitant]

REACTIONS (4)
  - VERTIGO [None]
  - TREMOR [None]
  - DIZZINESS [None]
  - MENTAL IMPAIRMENT [None]
